FAERS Safety Report 9745483 (Version 2)
Quarter: 2013Q4

REPORT INFORMATION
  Report Type: Spontaneous
  Country: US (occurrence: US)
  Receive Date: 20131211
  Receipt Date: 20131211
  Transmission Date: 20140711
  Serious: No
  Sender: FDA-Public Use
  Company Number: US-BIOGENIDEC-2013BI064069

PATIENT
  Age: 51 Year
  Sex: Female
  Weight: 83 kg

DRUGS (8)
  1. TECFIDERA [Suspect]
     Indication: MULTIPLE SCLEROSIS
     Route: 048
     Dates: start: 20130515, end: 20130521
  2. TECFIDERA [Suspect]
     Indication: MULTIPLE SCLEROSIS
     Route: 048
     Dates: start: 20130522
  3. TECFIDERA [Suspect]
     Indication: MULTIPLE SCLEROSIS
     Route: 048
     Dates: start: 20130601
  4. TECFIDERA [Suspect]
     Indication: MULTIPLE SCLEROSIS
     Route: 048
  5. VITAMIN D3 [Concomitant]
  6. CELEXA [Concomitant]
  7. TRIAMTERENE-HCTZ [Concomitant]
  8. BACLOFEN [Concomitant]

REACTIONS (10)
  - Liver function test abnormal [Unknown]
  - Dyspepsia [Unknown]
  - Eructation [Unknown]
  - Frequent bowel movements [Unknown]
  - White blood cell count abnormal [Recovered/Resolved]
  - Dizziness [Recovered/Resolved]
  - Underdose [Unknown]
  - Nausea [Recovered/Resolved]
  - Diarrhoea [Recovered/Resolved]
  - Retching [Recovered/Resolved]
